FAERS Safety Report 9792492 (Version 1)
Quarter: 2014Q1

REPORT INFORMATION
  Report Type: Spontaneous
  Country: NL (occurrence: NL)
  Receive Date: 20140102
  Receipt Date: 20140102
  Transmission Date: 20141002
  Serious: Yes (Other)
  Sender: FDA-Public Use
  Company Number: NL-ABBVIE-13P-114-1184818-00

PATIENT
  Age: 51 Year
  Sex: Female
  Weight: 95 kg

DRUGS (2)
  1. TEVETEN PLUS [Suspect]
     Indication: HYPERTENSION
     Dosage: FO 600/12.5MG
     Route: 048
     Dates: start: 20120720
  2. PREGABALIN [Interacting]
     Indication: NEURALGIA
     Route: 048
     Dates: start: 20131214, end: 20131214

REACTIONS (2)
  - Drug interaction [Recovering/Resolving]
  - Syncope [Recovering/Resolving]
